FAERS Safety Report 8056663-5 (Version None)
Quarter: 2012Q1

REPORT INFORMATION
  Report Type: 
  Country: None (occurrence: None)
  Receive Date: 20120119
  Receipt Date: 20120113
  Transmission Date: 20120608
  Serious: Yes (Death, Hospitalization, Other)
  Sender: FDA-Public Use
  Company Number: US-CELGENEUS-163-21880-11023151

PATIENT
  Age: 73 Year
  Sex: Male
  Weight: 93.1 kg

DRUGS (12)
  1. REVLIMID [Suspect]
     Dosage: 10 MILLIGRAM
     Route: 048
     Dates: start: 20110201, end: 20110215
  2. NIACIN [Concomitant]
     Route: 065
  3. REVLIMID [Suspect]
     Dosage: 10 MILLIGRAM
     Route: 048
     Dates: start: 20101109
  4. DOCUSATE [Concomitant]
     Route: 065
  5. ONDANSETRON [Concomitant]
     Route: 065
  6. MELPHALAN HYDROCHLORIDE [Suspect]
     Dosage: 5 MILLIGRAM/SQ. METER
     Route: 048
     Dates: start: 20101109
  7. PREDNISONE [Suspect]
     Dosage: 100 MILLIGRAM
     Route: 048
     Dates: start: 20101109
  8. ASPIRIN [Concomitant]
     Dosage: 325 MILLIGRAM
     Route: 048
     Dates: start: 20101109
  9. FOSINOPRIL SODIUM [Concomitant]
     Route: 065
  10. MELPHALAN HYDROCHLORIDE [Suspect]
     Dosage: 5 MILLIGRAM/SQ. METER
     Route: 048
     Dates: start: 20110201, end: 20110204
  11. OMEPRAZOLE [Concomitant]
     Route: 065
  12. PREDNISONE [Suspect]
     Dosage: 100 MILLIGRAM
     Route: 048
     Dates: start: 20110201, end: 20110204

REACTIONS (1)
  - DIFFUSE LARGE B-CELL LYMPHOMA [None]
